FAERS Safety Report 7393545-6 (Version None)
Quarter: 2011Q1

REPORT INFORMATION
  Report Type: 
  Country: None (occurrence: None)
  Receive Date: 20110331
  Receipt Date: 20110331
  Transmission Date: 20110831
  Serious: No
  Sender: FDA-Public Use
  Company Number: None

PATIENT
  Age: 48 Year
  Sex: Female

DRUGS (1)
  1. TAMOXIFEN CITRATE [Suspect]
     Dates: start: 20070327, end: 20071211

REACTIONS (5)
  - ALANINE AMINOTRANSFERASE INCREASED [None]
  - LIVER DISORDER [None]
  - HEPATIC STEATOSIS [None]
  - ASPARTATE AMINOTRANSFERASE INCREASED [None]
  - PARAESTHESIA [None]
